FAERS Safety Report 19772553 (Version 1)
Quarter: 2021Q3

REPORT INFORMATION
  Report Type: Spontaneous
  Country: RU (occurrence: RU)
  Receive Date: 20210901
  Receipt Date: 20210901
  Transmission Date: 20211014
  Serious: Yes (Life-Threatening)
  Sender: FDA-Public Use
  Company Number: RU-SA-2021SA287802

PATIENT
  Age: 72 Year
  Sex: Female
  Weight: 79 kg

DRUGS (4)
  1. LANTUS SOLOSTAR [Suspect]
     Active Substance: INSULIN GLARGINE
     Dosage: 36 IU, QD
     Route: 058
     Dates: start: 20170117, end: 20170118
  2. HUMULIN N [Suspect]
     Active Substance: INSULIN HUMAN
     Dosage: 36 IU, QOD
     Route: 065
     Dates: start: 20170327, end: 20170328
  3. BERODUAL [Concomitant]
     Active Substance: FENOTEROL HYDROBROMIDE\IPRATROPIUM BROMIDE
     Dosage: UNK
     Route: 055
  4. LEVEMIR [Suspect]
     Active Substance: INSULIN DETEMIR
     Dosage: 36 IU, QOD
     Route: 065
     Dates: start: 20170220, end: 20170221

REACTIONS (4)
  - Erythema [Recovering/Resolving]
  - Rash macular [Recovering/Resolving]
  - Pruritus [Recovering/Resolving]
  - Asphyxia [Recovering/Resolving]
